FAERS Safety Report 4269769-3 (Version None)
Quarter: 2004Q1

REPORT INFORMATION
  Report Type: 
  Country: None (occurrence: None)
  Receive Date: 20040113
  Receipt Date: 20031114
  Transmission Date: 20041129
  Serious: Yes (Death)
  Sender: FDA-Public Use
  Company Number: WAES 0311GBR00140

PATIENT

DRUGS (5)
  1. ALBUTEROL [Concomitant]
  2. FOSAMAX [Suspect]
     Dates: start: 20031014, end: 20031114
  3. FLUTICASONE PROPIONATE [Concomitant]
  4. PREDNISOLONE [Concomitant]
  5. TERBUTALINE SULFATE [Concomitant]

REACTIONS (4)
  - ABORTION SPONTANEOUS [None]
  - COMPLICATIONS OF MATERNAL EXPOSURE TO THERAPEUTIC DRUGS [None]
  - MATERNAL DRUGS AFFECTING FOETUS [None]
  - UNINTENDED PREGNANCY [None]
